FAERS Safety Report 8725525 (Version 2)
Quarter: 2012Q4

REPORT INFORMATION
  Report Type: 
  Country: US (occurrence: US)
  Receive Date: 20120815
  Receipt Date: 20120903
  Transmission Date: 20130627
  Serious: Yes (Death, Other)
  Sender: FDA-Public Use
  Company Number: US-PFIZER INC-2012193458

PATIENT
  Age: 86 Year
  Sex: Female
  Weight: 92.97 kg

DRUGS (11)
  1. REVATIO [Suspect]
     Indication: PULMONARY HYPERTENSION
     Dosage: 20 mg, 3x/day
     Route: 048
     Dates: start: 20120120
  2. DETROL LA [Concomitant]
     Dosage: 2 mg, daily
  3. LORTAB [Concomitant]
     Dosage: 75 mg, 3x/day
  4. MIRAPEX [Concomitant]
     Dosage: 0.125 mg, at bedtime
  5. PLAVIX [Concomitant]
     Dosage: 75 mg, 1x/day
     Route: 048
  6. PACERONE [Concomitant]
     Dosage: 200 mg, 1x/day
     Route: 048
  7. LISINOPRIL W/HYDROCHLOROTHIAZIDE [Concomitant]
     Dosage: 1x/day (20/12.5 daily/Every Day)
     Route: 048
  8. NORCO [Concomitant]
     Dosage: 2 Tab 325 mg - 7.5 mg QPM
     Route: 048
  9. ORUDIS [Concomitant]
     Dosage: 75 mg, UNK
     Route: 048
  10. PRAMIPEXOLE [Concomitant]
     Dosage: 0.125 mg, 1x/day (0.125 mg 1 Tab Every Day, at bedtime)
     Route: 048
  11. ZAROXOLYN [Concomitant]
     Dosage: 2.5 mg, 1x/day (Every Day)
     Route: 048

REACTIONS (3)
  - Colon cancer metastatic [Fatal]
  - Metastases to liver [Fatal]
  - Pleurisy [Unknown]
